FAERS Safety Report 7456329-6 (Version None)
Quarter: 2011Q2

REPORT INFORMATION
  Report Type: 
  Country: None (occurrence: None)
  Receive Date: 20110426
  Receipt Date: 20110415
  Transmission Date: 20111010
  Serious: Yes (Other)
  Sender: FDA-Public Use
  Company Number: RU-1185879

PATIENT
  Sex: Female

DRUGS (1)
  1. MAXIDEX [Suspect]
     Indication: POSTOPERATIVE CARE

REACTIONS (4)
  - HERPES VIRUS INFECTION [None]
  - FOREIGN BODY SENSATION IN EYES [None]
  - EYE IRRITATION [None]
  - CORNEAL DEFECT [None]
